FAERS Safety Report 4293645-3 (Version None)
Quarter: 2004Q1

REPORT INFORMATION
  Report Type: 
  Country: None (occurrence: None)
  Receive Date: 20040212
  Receipt Date: 20040206
  Transmission Date: 20041129
  Serious: Yes (Hospitalization)
  Sender: FDA-Public Use
  Company Number: 200410274JP

PATIENT
  Age: 47 Year
  Sex: Female

DRUGS (4)
  1. ARAVA [Suspect]
     Route: 048
     Dates: start: 20031028
  2. PREDNISOLONE [Concomitant]
  3. NSAID'S [Concomitant]
  4. METHOTREXATE [Concomitant]

REACTIONS (1)
  - ATRIAL FIBRILLATION [None]
